FAERS Safety Report 9725148 (Version 1)
Quarter: 2013Q4

REPORT INFORMATION
  Report Type: Spontaneous
  Country: US (occurrence: US)
  Receive Date: 20131203
  Receipt Date: 20131203
  Transmission Date: 20140711
  Serious: No
  Sender: FDA-Public Use
  Company Number: US-009507513-1311USA003766

PATIENT
  Age: 63 Year
  Sex: Male

DRUGS (7)
  1. REMERON SOLTAB [Suspect]
     Indication: POST-TRAUMATIC STRESS DISORDER
     Dosage: UNK
     Route: 048
     Dates: start: 2008
  2. REMERON SOLTAB [Suspect]
     Dosage: 45 MG, QD
     Route: 048
  3. REMERON SOLTAB [Suspect]
     Dosage: 22.5 MG, UNK
     Route: 048
  4. REMERON SOLTAB [Suspect]
     Dosage: 15 MG, QD
     Route: 048
  5. KLONOPIN [Concomitant]
  6. AMBIEN [Concomitant]
  7. ABILIFY [Concomitant]

REACTIONS (3)
  - Glomerular filtration rate abnormal [Not Recovered/Not Resolved]
  - Hypotension [Unknown]
  - Wrong technique in drug usage process [Unknown]
